FAERS Safety Report 10154883 (Version 3)
Quarter: 2014Q2

REPORT INFORMATION
  Report Type: Spontaneous
  Country: US (occurrence: US)
  Receive Date: 20140506
  Receipt Date: 20140617
  Transmission Date: 20141212
  Serious: Yes (Other)
  Sender: FDA-Public Use
  Company Number: US-BAYER-2014-062155

PATIENT
  Age: 44 Year
  Sex: Male

DRUGS (1)
  1. GADAVIST [Suspect]
     Dosage: 5.5 ML, ONCE
     Dates: start: 20140318, end: 20140318

REACTIONS (4)
  - Orbital oedema [None]
  - Erythema [None]
  - Sneezing [None]
  - Eye pruritus [None]
